FAERS Safety Report 8891676 (Version 2)
Quarter: 2013Q1

REPORT INFORMATION
  Report Type: Spontaneous
  Country: US (occurrence: None)
  Receive Date: 20121031
  Receipt Date: 20130321
  Transmission Date: 20140127
  Serious: Yes (Disabling, Other)
  Sender: FDA-Public Use
  Company Number: NSR_00593_2012

PATIENT
  Sex: Female

DRUGS (2)
  1. FLUOXETINE [Suspect]
     Indication: MAJOR DEPRESSION
     Dosage: (20 MG QD, ORAL)
     Route: 048
     Dates: start: 20120406
  2. FLUOXETINE [Concomitant]

REACTIONS (1)
  - Abdominal pain upper [None]
